FAERS Safety Report 8805946 (Version 1)
Quarter: 2012Q4

REPORT INFORMATION
  Report Type: Spontaneous
  Country: DE (occurrence: None)
  Receive Date: 20120918
  Receipt Date: 20120918
  Transmission Date: 20130627
  Serious: Yes (Other)
  Sender: FDA-Public Use
  Company Number: DSU-2012-07311

PATIENT
  Sex: Female
  Weight: 52 kg

DRUGS (6)
  1. CHOLESTAGEL [Suspect]
     Indication: DRUG USE FOR UNKNOWN INDICATION
     Dosage: 4df dosage form, per oral
     Route: 048
     Dates: start: 201202
  2. FLUVASTATIN [Suspect]
     Indication: DRUG USE FOR UNKNOWN INDICATION
     Dosage: 20
     Dates: start: 201202
  3. TREDAPTIVE [Suspect]
     Indication: DRUG USE FOR UNKNOWN INDICATION
     Dosage: 1000
  4. SIMVASTATIN [Suspect]
     Indication: DRUG USE FOR UNKNOWN INDICATION
     Dosage: 5df dosage form, oral
     Route: 048
     Dates: start: 201104, end: 201108
  5. SORTIS [Suspect]
     Indication: DRUG USE FOR UNKNOWN INDICATION
     Dosage: 10df dosage form
     Dates: start: 2011, end: 2011
  6. PRAVASTATIN [Suspect]
     Indication: DRUG USE FOR UNKNOWN INDICATION
     Dosage: 10df dosage form

REACTIONS (5)
  - Myalgia [None]
  - Rash [None]
  - Angioedema [None]
  - Cognitive disorder [None]
  - Constipation [None]
